FAERS Safety Report 15805967 (Version 1)
Quarter: 2019Q1

REPORT INFORMATION
  Report Type: Spontaneous
  Country: US (occurrence: US)
  Receive Date: 20190110
  Receipt Date: 20190110
  Transmission Date: 20190417
  Serious: No
  Sender: FDA-Public Use
  Company Number: US-AUROBINDO-AUR-APU-2018-043919

PATIENT
  Sex: Male
  Weight: 81.63 kg

DRUGS (3)
  1. LISINOPRIL. [Concomitant]
     Active Substance: LISINOPRIL
     Indication: PRODUCT USED FOR UNKNOWN INDICATION
     Dosage: 40 MILLIGRAM
  2. OXYCODONE 5MG [Suspect]
     Active Substance: OXYCODONE
     Indication: BREAKTHROUGH PAIN
     Dosage: 5 MILLIGRAM, FOUR TIMES/DAY
     Route: 048
     Dates: start: 20180705
  3. XTAMPZA ER [Suspect]
     Active Substance: OXYCODONE
     Indication: PAIN
     Dosage: 27 MILLIGRAM, TWO TIMES A DAY
     Route: 048
     Dates: start: 20180705

REACTIONS (1)
  - Drug ineffective [Unknown]
